FAERS Safety Report 12274633 (Version 1)
Quarter: 2016Q2

REPORT INFORMATION
  Report Type: Spontaneous
  Country: US (occurrence: US)
  Receive Date: 20160415
  Receipt Date: 20160415
  Transmission Date: 20160815
  Serious: No
  Sender: FDA-Public Use
  Company Number: US-ALLERGAN-1507188US

PATIENT
  Sex: Female
  Weight: 47.62 kg

DRUGS (4)
  1. SYSTANE (HYPROMELLOSE 2910 (4000 MPA.S)) [Concomitant]
     Active Substance: HYPROMELLOSE 2910 (4000 MPA.S)
     Indication: DRY EYE
     Dosage: UNK
     Route: 047
  2. EQUATE SINUS ALLERGY [Concomitant]
     Indication: SEASONAL ALLERGY
     Dosage: UNK UNK, PRN
  3. LATISSE [Suspect]
     Active Substance: BIMATOPROST
     Indication: TRICHORRHEXIS
     Dosage: UNK UNK, QD
     Route: 061
     Dates: start: 2012
  4. LATISSE [Suspect]
     Active Substance: BIMATOPROST
     Indication: TRICHORRHEXIS

REACTIONS (3)
  - Drug ineffective [Not Recovered/Not Resolved]
  - Off label use [Unknown]
  - Trichorrhexis [Not Recovered/Not Resolved]
